FAERS Safety Report 5908694-6 (Version None)
Quarter: 2008Q4

REPORT INFORMATION
  Report Type: 
  Country: None (occurrence: None)
  Receive Date: 20081006
  Receipt Date: 20080926
  Transmission Date: 20090506
  Serious: Yes (Hospitalization, Other)
  Sender: FDA-Public Use
  Company Number: A0748158A

PATIENT
  Age: 81 Year
  Sex: Female

DRUGS (1)
  1. RYTHMOL [Suspect]
     Indication: VENTRICULAR ARRHYTHMIA
     Dosage: 225MG TWICE PER DAY
     Route: 048

REACTIONS (3)
  - ANAEMIA [None]
  - BLOOD IRON DECREASED [None]
  - IRON METABOLISM DISORDER [None]
